FAERS Safety Report 18649622 (Version 1)
Quarter: 2020Q4

REPORT INFORMATION
  Report Type: Spontaneous
  Country: US (occurrence: US)
  Receive Date: 20201222
  Receipt Date: 20201222
  Transmission Date: 20210114
  Serious: Yes (Other)
  Sender: FDA-Public Use
  Company Number: US-009507513-2012USA009148

PATIENT
  Age: 72 Year
  Sex: Male

DRUGS (50)
  1. REMERON [Suspect]
     Active Substance: MIRTAZAPINE
     Indication: PRODUCT USED FOR UNKNOWN INDICATION
     Dosage: 30 MG, QHS
     Route: 065
  2. MORPHINE [Suspect]
     Active Substance: MORPHINE
     Dosage: 0.378 MG, PER DAY
     Route: 037
     Dates: start: 20140826
  3. DOLOPHINE [Suspect]
     Active Substance: METHADONE HYDROCHLORIDE
     Indication: PRODUCT USED FOR UNKNOWN INDICATION
     Dosage: 5 MG, BID
     Route: 048
  4. REMERON [Suspect]
     Active Substance: MIRTAZAPINE
     Indication: PRODUCT USED FOR UNKNOWN INDICATION
     Dosage: 30 MG, NIGHTLY AT BED TIME
     Route: 048
  5. MORPHINE [Suspect]
     Active Substance: MORPHINE
     Indication: PRODUCT USED FOR UNKNOWN INDICATION
     Dosage: 0.013 MG, PER DAY
     Route: 037
     Dates: start: 20141029
  6. ASPIRIN. [Suspect]
     Active Substance: ASPIRIN
     Indication: PRODUCT USED FOR UNKNOWN INDICATION
     Dosage: 81 MG, QD
     Route: 048
  7. ZITHROMAX [Suspect]
     Active Substance: AZITHROMYCIN DIHYDRATE
     Indication: PRODUCT USED FOR UNKNOWN INDICATION
     Dosage: 250 MG, ONE EVERY OTHER DAY
     Route: 048
  8. WELLBUTRIN [Suspect]
     Active Substance: BUPROPION HYDROCHLORIDE
     Indication: PRODUCT USED FOR UNKNOWN INDICATION
     Dosage: 100 MG, QD
     Route: 048
  9. SKELAXIN [Suspect]
     Active Substance: METAXALONE
     Indication: PRODUCT USED FOR UNKNOWN INDICATION
     Dosage: 2400 MILLIGRAM, QD (800 MG, TID)
     Route: 048
  10. ZOFRAN [Suspect]
     Active Substance: ONDANSETRON HYDROCHLORIDE
     Indication: PRODUCT USED FOR UNKNOWN INDICATION
     Dosage: 4 MG, QD
     Route: 048
  11. GUAIFENESIN AC [Suspect]
     Active Substance: CODEINE PHOSPHATE\GUAIFENESIN
     Indication: DYSPNOEA
     Dosage: UNK
  12. CHLORZOXAZONE. [Suspect]
     Active Substance: CHLORZOXAZONE
     Indication: PRODUCT USED FOR UNKNOWN INDICATION
     Dosage: UNK
     Route: 065
  13. NEURONTIN [Suspect]
     Active Substance: GABAPENTIN
     Indication: PRODUCT USED FOR UNKNOWN INDICATION
     Dosage: 2700 MILLIGRAM, QD (900 MG, TID)
     Route: 048
  14. AVODART [Suspect]
     Active Substance: DUTASTERIDE
     Indication: PRODUCT USED FOR UNKNOWN INDICATION
     Dosage: 0.5 MG, QD
     Route: 065
  15. AUGMENTAN [Suspect]
     Active Substance: AMOXICILLIN\CLAVULANATE POTASSIUM
     Indication: PRODUCT USED FOR UNKNOWN INDICATION
     Dosage: 1 DF, BID, (875/125 MG)
     Route: 048
  16. LIORESAL [Suspect]
     Active Substance: BACLOFEN
     Indication: PRODUCT USED FOR UNKNOWN INDICATION
     Dosage: 1 DF, TID
     Route: 048
  17. FOSAMAX [Suspect]
     Active Substance: ALENDRONATE SODIUM
     Indication: PRODUCT USED FOR UNKNOWN INDICATION
     Dosage: 70 MG, QW
     Route: 048
  18. NASONEX [Suspect]
     Active Substance: MOMETASONE FUROATE
     Indication: PRODUCT USED FOR UNKNOWN INDICATION
     Dosage: 1 DF, QD 50 UG ACTUATION SPRAY, ONE SPRAY
     Route: 045
  19. BUPIVACAINE. [Suspect]
     Active Substance: BUPIVACAINE
     Dosage: 1.032 MG, PER DAY
     Route: 037
  20. LORATADINE. [Suspect]
     Active Substance: LORATADINE
     Indication: PRODUCT USED FOR UNKNOWN INDICATION
     Dosage: 20 MG, QD
     Route: 048
  21. SYMBICORT [Suspect]
     Active Substance: BUDESONIDE\FORMOTEROL FUMARATE DIHYDRATE
     Indication: PRODUCT USED FOR UNKNOWN INDICATION
     Dosage: 1 DF, BID TWO PUFFS INTO LUNGS
     Route: 055
  22. ANDROGEL [Suspect]
     Active Substance: TESTOSTERONE
     Indication: PRODUCT USED FOR UNKNOWN INDICATION
     Dosage: 1.62 PERCENT 20.25 MG/1.25 GRAM GELPKT PLACE ONTO SKIN
     Route: 065
  23. ROBAXIN [Suspect]
     Active Substance: METHOCARBAMOL
     Indication: PRODUCT USED FOR UNKNOWN INDICATION
     Dosage: UNK
     Route: 065
  24. GUAIFENESIN AC [Suspect]
     Active Substance: CODEINE PHOSPHATE\GUAIFENESIN
     Indication: COUGH
     Dosage: 10 MILLILITER, QD, (5 ML, BID (AS NEEDED))
     Route: 048
  25. BACLOFEN. [Suspect]
     Active Substance: BACLOFEN
     Dosage: 12.908 UG, PER DAY
     Route: 037
  26. CELEBREX [Suspect]
     Active Substance: CELECOXIB
     Indication: PRODUCT USED FOR UNKNOWN INDICATION
     Dosage: 200 MG, QD
     Route: 048
  27. CALCIUM (UNSPECIFIED) [Suspect]
     Active Substance: CALCIUM
     Indication: PRODUCT USED FOR UNKNOWN INDICATION
     Dosage: 1660 MILLIGRAM (830 MG, BID)
     Route: 048
  28. MORPHINE [Suspect]
     Active Substance: MORPHINE
     Dosage: 0.189 MG, PER DAY
     Route: 037
  29. FLOMAX [Suspect]
     Active Substance: TAMSULOSIN HYDROCHLORIDE
     Indication: PRODUCT USED FOR UNKNOWN INDICATION
     Dosage: 0.8 MG, DAILY TAKE TWO CAPSULES
     Route: 048
  30. BACLOFEN. [Suspect]
     Active Substance: BACLOFEN
     Indication: PAIN
     Dosage: 0.453 UG, PER DAY
     Route: 037
     Dates: start: 20141029
  31. BACLOFEN. [Suspect]
     Active Substance: BACLOFEN
     Dosage: 6.545 UG, PER DAY
     Route: 037
  32. BUPIVACAINE. [Suspect]
     Active Substance: BUPIVACAINE
     Dosage: 3.668 MG, PER DAY
     Route: 037
  33. BUPROPION. [Suspect]
     Active Substance: BUPROPION
     Indication: PRODUCT USED FOR UNKNOWN INDICATION
     Dosage: 100 MG, QD
     Route: 048
  34. CARAFATE [Suspect]
     Active Substance: SUCRALFATE
     Indication: PRODUCT USED FOR UNKNOWN INDICATION
     Dosage: 1 G, TID
     Route: 048
  35. LIPITOR [Suspect]
     Active Substance: ATORVASTATIN CALCIUM
     Indication: PRODUCT USED FOR UNKNOWN INDICATION
     Dosage: 10 MG, QD
     Route: 048
  36. GUAIFENESIN AC [Suspect]
     Active Substance: CODEINE PHOSPHATE\GUAIFENESIN
     Indication: WHEEZING
     Dosage: UNK
  37. SODIUM CHLORIDE. [Suspect]
     Active Substance: SODIUM CHLORIDE
     Indication: PRODUCT USED FOR UNKNOWN INDICATION
     Dosage: 4 ML, ONE TO TWO TIMES DAILY
     Route: 055
  38. BUPIVACAINE. [Suspect]
     Active Substance: BUPIVACAINE
     Indication: PRODUCT USED FOR UNKNOWN INDICATION
     Dosage: 0.072 MG, PER DAY
     Route: 037
     Dates: start: 20141029
  39. BUPIVACAINE. [Suspect]
     Active Substance: BUPIVACAINE
     Dosage: 2.065 MG, QD
     Route: 037
     Dates: start: 20140826
  40. VITAMIN D (UNSPECIFIED) [Suspect]
     Active Substance: VITAMIN D NOS
     Indication: PRODUCT USED FOR UNKNOWN INDICATION
     Dosage: 50000 DOSAGE FORM (50000 U, ONCE EVERY OTHER WEEK)
     Route: 048
  41. SKELAXIN [Suspect]
     Active Substance: METAXALONE
     Dosage: 2400 MILLIGRAM, QD (800 MG, TID)
     Route: 065
  42. PROTONIX [Suspect]
     Active Substance: PANTOPRAZOLE SODIUM
     Indication: PRODUCT USED FOR UNKNOWN INDICATION
     Dosage: 40 MG, BID
     Route: 048
  43. LUVOX [Suspect]
     Active Substance: FLUVOXAMINE MALEATE
     Indication: PRODUCT USED FOR UNKNOWN INDICATION
     Dosage: 50 MG, BID
     Route: 048
  44. DUONEB [Suspect]
     Active Substance: ALBUTEROL SULFATE\IPRATROPIUM BROMIDE
     Indication: PRODUCT USED FOR UNKNOWN INDICATION
     Dosage: 3 ML, BID (0.5 MG/3MG (2.5 MG BASE) /3ML)
     Route: 055
  45. DANTROLENE. [Suspect]
     Active Substance: DANTROLENE SODIUM
     Indication: PRODUCT USED FOR UNKNOWN INDICATION
     Dosage: UNK
     Route: 065
  46. MORPHINE [Suspect]
     Active Substance: MORPHINE
     Dosage: 0.672 MG, PER DAY
     Route: 037
  47. GABAPENTIN. [Suspect]
     Active Substance: GABAPENTIN
     Indication: PRODUCT USED FOR UNKNOWN INDICATION
     Dosage: 2700 MILLIGRAM, QD (900 MG, TID)
     Route: 065
  48. FLUVOXAMINE MALEATE. [Suspect]
     Active Substance: FLUVOXAMINE MALEATE
     Indication: PRODUCT USED FOR UNKNOWN INDICATION
     Dosage: 50 MG, BID
     Route: 065
  49. PARAFON FORTE [Suspect]
     Active Substance: CHLORZOXAZONE
     Indication: MUSCLE SPASMS
     Dosage: 1500 MILLIGRAM, QD (500 MG, TID (AS NEEDED))
     Route: 048
  50. BACLOFEN. [Suspect]
     Active Substance: BACLOFEN
     Dosage: 22.928 UG, PER DAY
     Route: 037

REACTIONS (11)
  - Back pain [Unknown]
  - Lung disorder [Unknown]
  - Muscle spasms [Not Recovered/Not Resolved]
  - Kyphosis [Unknown]
  - Medication error [Unknown]
  - Crepitations [Unknown]
  - Cough [Unknown]
  - Spinal compression fracture [Unknown]
  - Dyspnoea [Unknown]
  - Therapy non-responder [Unknown]
  - Spinal stenosis [Unknown]

NARRATIVE: CASE EVENT DATE: 20140723
